FAERS Safety Report 24917412 (Version 1)
Quarter: 2025Q1

REPORT INFORMATION
  Report Type: Spontaneous
  Country: US (occurrence: US)
  Receive Date: 20250203
  Receipt Date: 20250203
  Transmission Date: 20250409
  Serious: No
  Sender: Vantive US Healthcare
  Company Number: US-VANTIVE-2025VAN000526

PATIENT
  Age: 56 Year
  Sex: Male

DRUGS (1)
  1. DIANEAL FOR PERITONEAL DIALYSIS [Suspect]
     Active Substance: ANHYDROUS DEXTROSE\CALCIUM CHLORIDE\MAGNESIUM CHLORIDE\SODIUM CHLORIDE\SODIUM LACTATE
     Route: 033

REACTIONS (4)
  - Therapeutic product effect increased [Unknown]
  - Injury [Unknown]
  - Muscle spasms [Unknown]
  - Dehydration [Unknown]

NARRATIVE: CASE EVENT DATE: 20250123
